FAERS Safety Report 6392291-5 (Version None)
Quarter: 2009Q4

REPORT INFORMATION
  Report Type: 
  Country: None (occurrence: None)
  Receive Date: 20091005
  Receipt Date: 20090923
  Transmission Date: 20100525
  Serious: Yes (Hospitalization)
  Sender: FDA-Public Use
  Company Number: GXKR2009JP09093

PATIENT
  Age: 78 Year
  Sex: Male
  Weight: 47.2 kg

DRUGS (4)
  1. AZITHROMYCIN [Suspect]
     Indication: PYREXIA
     Dates: start: 20061001
  2. AZITHROMYCIN [Suspect]
     Indication: UPPER RESPIRATORY TRACT INFECTION
     Dates: start: 20061001
  3. AZITHROMYCIN [Suspect]
     Indication: PYREXIA
     Dates: start: 20061123
  4. AZITHROMYCIN [Suspect]
     Indication: UPPER RESPIRATORY TRACT INFECTION
     Dates: start: 20061123

REACTIONS (8)
  - BLOOD LACTATE DEHYDROGENASE INCREASED [None]
  - DYSPNOEA [None]
  - HAEMOPTYSIS [None]
  - HYPOXIA [None]
  - INTERSTITIAL LUNG DISEASE [None]
  - PNEUMONIA VIRAL [None]
  - PULMONARY ALVEOLAR HAEMORRHAGE [None]
  - PYREXIA [None]
